FAERS Safety Report 10069273 (Version 1)
Quarter: 2014Q2

REPORT INFORMATION
  Report Type: Spontaneous
  Country: US (occurrence: US)
  Receive Date: 20140409
  Receipt Date: 20140409
  Transmission Date: 20141212
  Serious: No
  Sender: FDA-Public Use
  Company Number: US-ASTELLAS-2013US012348

PATIENT
  Age: 71 Year
  Sex: Female

DRUGS (2)
  1. PROTOPIC [Suspect]
     Indication: DRY SKIN
     Dosage: 0.1 %, ONE TIME
     Route: 061
     Dates: start: 201311
  2. PROTOPIC [Suspect]
     Indication: RASH

REACTIONS (3)
  - Off label use [Unknown]
  - Pruritus [Not Recovered/Not Resolved]
  - Burning sensation [Not Recovered/Not Resolved]
